FAERS Safety Report 6423141-6 (Version None)
Quarter: 2009Q4

REPORT INFORMATION
  Report Type: 
  Country: None (occurrence: None)
  Receive Date: 20091022
  Receipt Date: 20090807
  Transmission Date: 20100525
  Serious: Yes (Hospitalization)
  Sender: FDA-Public Use
  Company Number: 2009RR-26252

PATIENT
  Sex: Male

DRUGS (1)
  1. LORAZEPAM [Suspect]

REACTIONS (2)
  - ACCIDENTAL OVERDOSE [None]
  - CONFUSIONAL STATE [None]
